FAERS Safety Report 5027314-9 (Version None)
Quarter: 2006Q2

REPORT INFORMATION
  Report Type: 
  Country: None (occurrence: None)
  Receive Date: 20060612
  Receipt Date: 20060526
  Transmission Date: 20061013
  Serious: Yes (Hospitalization, Other)
  Sender: FDA-Public Use
  Company Number: US-2006-013237

PATIENT
  Age: 48 Year
  Sex: Female

DRUGS (1)
  1. BETASERON [Suspect]
     Indication: MULTIPLE SCLEROSIS
     Dosage: 4 MIU, EVERY 2D, SUBCUTANEOUS
     Route: 058
     Dates: start: 20060322, end: 20060413

REACTIONS (5)
  - BRAIN OEDEMA [None]
  - DEPRESSED LEVEL OF CONSCIOUSNESS [None]
  - HAEMOGLOBIN DECREASED [None]
  - HYPOTHYROIDISM [None]
  - LETHARGY [None]
